FAERS Safety Report 6392292-7 (Version None)
Quarter: 2009Q4

REPORT INFORMATION
  Report Type: 
  Country: None (occurrence: None)
  Receive Date: 20091007
  Receipt Date: 20090506
  Transmission Date: 20100525
  Serious: Yes (Other)
  Sender: FDA-Public Use
  Company Number: BR-PFIZER INC-2009209593

PATIENT
  Age: 52 Year

DRUGS (1)
  1. CELEBRA [Suspect]
     Indication: BURSITIS
     Dosage: 200 MG, 2X/DAY, EVERY 12 HOURS
     Route: 048
     Dates: start: 20090101, end: 20090501

REACTIONS (5)
  - CHILLS [None]
  - DIZZINESS [None]
  - DYSPNOEA [None]
  - MALAISE [None]
  - MUSCLE CONTRACTIONS INVOLUNTARY [None]
